FAERS Safety Report 4965655-1 (Version None)
Quarter: 2006Q1

REPORT INFORMATION
  Report Type: 
  Country: None (occurrence: None)
  Receive Date: 20060201
  Receipt Date: 20051117
  Transmission Date: 20060701
  Serious: No
  Sender: FDA-Public Use
  Company Number: 2005PV005156

PATIENT
  Age: 48 Year
  Sex: 0

DRUGS (4)
  1. BYETTA [Suspect]
     Dosage: 10 MCG; BID; SC
     Route: 058
     Dates: start: 20051012, end: 20051114
  2. ACTOS [Concomitant]
  3. NOVOLOG [Concomitant]
  4. LANTUS [Concomitant]

REACTIONS (3)
  - ABDOMINAL PAIN [None]
  - NAUSEA [None]
  - VOMITING [None]
